FAERS Safety Report 9382670 (Version 2)
Quarter: 2013Q3

REPORT INFORMATION
  Report Type: Spontaneous
  Country: US (occurrence: US)
  Receive Date: 20130703
  Receipt Date: 20130725
  Transmission Date: 20140515
  Serious: No
  Sender: FDA-Public Use
  Company Number: US-009507513-1306USA000526

PATIENT
  Age: 74 Year
  Sex: Female
  Weight: 48.73 kg

DRUGS (9)
  1. MIRALAX [Suspect]
     Indication: COLONOSCOPY
     Dosage: 238 G, UNKNOWN
     Route: 048
     Dates: start: 20100818
  2. NORVAS [Concomitant]
     Indication: HYPERTENSION
     Route: 048
  3. SYNTHROID [Concomitant]
     Indication: PRODUCT USED FOR UNKNOWN INDICATION
     Route: 048
  4. COLACE [Concomitant]
     Indication: PRODUCT USED FOR UNKNOWN INDICATION
     Route: 048
  5. XANAX [Concomitant]
     Indication: ANXIETY
     Route: 048
  6. CENTRUM SILVER [Concomitant]
     Route: 048
  7. CALTRATE (CALCIUM CARBONATE) [Concomitant]
     Indication: PRODUCT USED FOR UNKNOWN INDICATION
     Route: 048
  8. VITAMIN D (UNSPECIFIED) [Concomitant]
     Indication: PRODUCT USED FOR UNKNOWN INDICATION
     Dosage: UNK
     Route: 048
  9. OMEGA-3 MARINE TRIGLYCERIDES [Concomitant]
     Indication: PRODUCT USED FOR UNKNOWN INDICATION
     Route: 048

REACTIONS (8)
  - Insomnia [Unknown]
  - Incontinence [Unknown]
  - Off label use [Unknown]
  - Off label use [Unknown]
  - Overdose [Unknown]
  - Weight decreased [Unknown]
  - Burning sensation [Unknown]
  - Mucous stools [Unknown]
